FAERS Safety Report 10432559 (Version 1)
Quarter: 2014Q3

REPORT INFORMATION
  Report Type: Spontaneous
  Country: US (occurrence: US)
  Receive Date: 20140905
  Receipt Date: 20140905
  Transmission Date: 20150326
  Serious: Yes (Other)
  Sender: FDA-Public Use
  Company Number: US-TARO PHARMACEUTICALS U.S.A., INC-2014SUN02005

PATIENT
  Age: 23 Year
  Sex: Female

DRUGS (1)
  1. CLOBETASOL PROPIONATE CREAM USP, 0.05% [Suspect]
     Active Substance: CLOBETASOL PROPIONATE
     Indication: DERMATITIS ATOPIC
     Dosage: UNK
     Route: 061

REACTIONS (3)
  - Vaccinia virus infection [Recovered/Resolved]
  - Activities of daily living impaired [None]
  - Sexual transmission of infection [None]

NARRATIVE: CASE EVENT DATE: 201203
